FAERS Safety Report 8259032-8 (Version None)
Quarter: 2012Q2

REPORT INFORMATION
  Report Type: 
  Country: None (occurrence: None)
  Receive Date: 20120404
  Receipt Date: 20120326
  Transmission Date: 20120825
  Serious: Yes (Hospitalization)
  Sender: FDA-Public Use
  Company Number: JP-SANOFI-AVENTIS-2011SA054695

PATIENT
  Age: 82 Year
  Sex: Female
  Weight: 52 kg

DRUGS (15)
  1. PREDNISOLONE [Concomitant]
     Dosage: STRENGTH: 50 MG
     Route: 048
     Dates: end: 20110716
  2. HEPARIN SODIUM [Concomitant]
     Route: 042
  3. FAMOTIDINE [Suspect]
     Indication: DRUG ERUPTION
     Route: 048
     Dates: start: 20110703, end: 20110713
  4. COTRIM [Concomitant]
     Route: 048
  5. CORTICOSTEROIDS [Concomitant]
     Route: 048
  6. ACETAMINOPHEN [Concomitant]
     Route: 048
  7. SOLITA-T3 INJECTION [Concomitant]
     Route: 041
  8. LANSOPRAZOLE [Concomitant]
     Route: 048
  9. ITRACONAZOLE [Concomitant]
     Dates: start: 20110624, end: 20110630
  10. ALL OTHER THERAPEUTIC PRODUCTS [Concomitant]
  11. ALL OTHER THERAPEUTIC PRODUCTS [Concomitant]
  12. ALLEGRA [Suspect]
     Indication: DRUG ERUPTION
     Route: 048
     Dates: start: 20110706, end: 20110712
  13. POLARAMINE [Suspect]
     Indication: DRUG ERUPTION
     Route: 048
     Dates: start: 20110702, end: 20110713
  14. AMLODIPINE BESILATE/CANDESARTAN CILEXETIL [Concomitant]
     Route: 048
  15. PLAVIX [Concomitant]
     Route: 048

REACTIONS (4)
  - LIVER DISORDER [None]
  - ASPARTATE AMINOTRANSFERASE INCREASED [None]
  - CONDITION AGGRAVATED [None]
  - ALANINE AMINOTRANSFERASE INCREASED [None]
